FAERS Safety Report 13357342 (Version 3)
Quarter: 2019Q4

REPORT INFORMATION
  Report Type: Report from Study
  Country: JP (occurrence: JP)
  Receive Date: 20170322
  Receipt Date: 20191129
  Transmission Date: 20200122
  Serious: Yes (Death, Life-Threatening, Other)
  Sender: FDA-Public Use
  Company Number: JP-ALXN-A201702509AA

PATIENT

DRUGS (1)
  1. SOLIRIS [Suspect]
     Active Substance: ECULIZUMAB
     Indication: ATYPICAL HAEMOLYTIC URAEMIC SYNDROME
     Dosage: 900 UNK, DAILY
     Route: 042
     Dates: start: 20170217, end: 20170303

REACTIONS (3)
  - Altered state of consciousness [Not Recovered/Not Resolved]
  - Condition aggravated [Fatal]
  - Drug ineffective [Unknown]

NARRATIVE: CASE EVENT DATE: 20170308
